FAERS Safety Report 6056232-2 (Version None)
Quarter: 2009Q1

REPORT INFORMATION
  Report Type: 
  Country: None (occurrence: None)
  Receive Date: 20090123
  Receipt Date: 20090123
  Transmission Date: 20090719
  Serious: Yes (Hospitalization)
  Sender: FDA-Public Use
  Company Number: None

PATIENT
  Age: 65 Year
  Sex: Female
  Weight: 97.977 kg

DRUGS (2)
  1. BYETTA [Suspect]
     Indication: DIABETES MELLITUS
     Dosage: UNKNOWN SQ
     Route: 058
  2. JANUVIA [Suspect]
     Indication: DIABETES MELLITUS
     Dosage: 50MG BID PO
     Route: 048

REACTIONS (1)
  - PANCREATITIS [None]
